FAERS Safety Report 4603199-7 (Version None)
Quarter: 2005Q1

REPORT INFORMATION
  Report Type: 
  Country: None (occurrence: None)
  Receive Date: 20050307
  Receipt Date: 20050225
  Transmission Date: 20050727
  Serious: Yes (Hospitalization, Other)
  Sender: FDA-Public Use
  Company Number: 2005-02-1566

PATIENT
  Age: 73 Year
  Sex: Female

DRUGS (5)
  1. VIRAFERONPEG [Suspect]
     Indication: HEPATITIS
     Dosage: SUBCUTANEOUS
     Route: 058
     Dates: start: 20041203
  2. REBETOL [Suspect]
     Indication: HEPATITIS
     Dosage: ORAL
     Route: 048
     Dates: start: 20041204
  3. MANTADIX [Concomitant]
  4. TOCO [Concomitant]
  5. DAFALGAN [Concomitant]

REACTIONS (4)
  - AMNESIA [None]
  - ANAEMIA [None]
  - CREUTZFELDT-JAKOB DISEASE [None]
  - INCOHERENT [None]
